FAERS Safety Report 20072770 (Version 3)
Quarter: 2021Q4

REPORT INFORMATION
  Report Type: Spontaneous
  Country: US (occurrence: US)
  Receive Date: 20211116
  Receipt Date: 20211124
  Transmission Date: 20220303
  Serious: No
  Sender: FDA-Public Use
  Company Number: US-AMGEN-USASP2021176496

PATIENT
  Sex: Female
  Weight: 45.351 kg

DRUGS (3)
  1. OTEZLA [Suspect]
     Active Substance: APREMILAST
     Indication: Immune-mediated arthritis
     Dosage: 30 MILLIGRAM, QD
     Route: 065
  2. OTEZLA [Suspect]
     Active Substance: APREMILAST
     Dosage: 60 MILLIGRAM, QD
     Route: 065
  3. OTEZLA [Suspect]
     Active Substance: APREMILAST
     Dosage: 30 MILLIGRAM, QD
     Route: 065

REACTIONS (4)
  - Surgery [Unknown]
  - Gastrointestinal disorder [Recovering/Resolving]
  - Off label use [Unknown]
  - Weight decreased [Unknown]
